FAERS Safety Report 13797802 (Version 5)
Quarter: 2018Q3

REPORT INFORMATION
  Report Type: Spontaneous
  Country: US (occurrence: US)
  Receive Date: 20170727
  Receipt Date: 20180701
  Transmission Date: 20181010
  Serious: Yes (Life-Threatening, Other)
  Sender: FDA-Public Use
  Company Number: US-009507513-1707USA010930

PATIENT
  Age: 78 Year
  Sex: Female

DRUGS (5)
  1. PRINIVIL [Suspect]
     Active Substance: LISINOPRIL
     Indication: HYPERTENSION
     Dosage: UNK
     Route: 048
  2. LEVOTHYROXINE SODIUM. [Concomitant]
     Active Substance: LEVOTHYROXINE SODIUM
     Indication: HYPOTHYROIDISM
     Dosage: UNK
     Route: 048
  3. ISOFLURANE. [Concomitant]
     Active Substance: ISOFLURANE
     Indication: INDUCTION AND MAINTENANCE OF ANAESTHESIA
     Dosage: UNK
  4. ASPIRIN. [Concomitant]
     Active Substance: ASPIRIN
     Indication: OSTEOARTHRITIS
     Dosage: UNK
     Route: 048
  5. PROPOFOL. [Concomitant]
     Active Substance: PROPOFOL
     Indication: INDUCTION AND MAINTENANCE OF ANAESTHESIA
     Dosage: UNK

REACTIONS (1)
  - Hypotensive transfusion reaction [Recovered/Resolved]
